FAERS Safety Report 20591557 (Version 1)
Quarter: 2022Q1

REPORT INFORMATION
  Report Type: Spontaneous
  Country: US (occurrence: US)
  Receive Date: 20220314
  Receipt Date: 20220314
  Transmission Date: 20220423
  Serious: No
  Sender: FDA-Public Use
  Company Number: US-SUNOVION-2022SUN000710

PATIENT
  Sex: Female

DRUGS (1)
  1. LATUDA [Interacting]
     Active Substance: LURASIDONE HYDROCHLORIDE
     Dosage: 40 MG
     Route: 048

REACTIONS (5)
  - Withdrawal syndrome [Unknown]
  - Drug interaction [Unknown]
  - Pyrexia [Unknown]
  - Nausea [Unknown]
  - Therapy interrupted [Unknown]
